FAERS Safety Report 9778242 (Version 4)
Quarter: 2014Q1

REPORT INFORMATION
  Report Type: Spontaneous
  Country: DE (occurrence: DE)
  Receive Date: 20131223
  Receipt Date: 20140109
  Transmission Date: 20141002
  Serious: Yes (Other)
  Sender: FDA-Public Use
  Company Number: DE-AMGEN-DEUSP2013086113

PATIENT
  Age: 73 Year
  Sex: Female
  Weight: 54 kg

DRUGS (6)
  1. PROLIA [Suspect]
     Indication: OSTEOPOROSIS
     Dosage: UNK
     Route: 058
     Dates: start: 20130529
  2. CLOPIDOGREL [Concomitant]
     Dosage: 75 MG, QD
     Route: 048
  3. BISOPROLOL PLUS [Concomitant]
     Dosage: 5/12.5 MG, QD
     Route: 048
  4. ATACAND [Concomitant]
     Dosage: 4 MG, QD
     Route: 048
  5. ALLOPURINOL [Concomitant]
     Dosage: 200 MG, QD
     Route: 048
  6. CALCIUM WITH VITAMIN D3 [Concomitant]
     Dosage: 500/400 MG, BID
     Route: 048

REACTIONS (7)
  - Angina pectoris [Recovered/Resolved]
  - Malaise [Recovered/Resolved]
  - Neuralgia [Recovered/Resolved]
  - Myalgia [Recovered/Resolved]
  - Arthritis [Unknown]
  - Blood pressure abnormal [Unknown]
  - Arthralgia [Unknown]
